FAERS Safety Report 9373037 (Version 1)
Quarter: 2013Q2

REPORT INFORMATION
  Report Type: Spontaneous
  Country: CA (occurrence: CA)
  Receive Date: 20130627
  Receipt Date: 20130627
  Transmission Date: 20140414
  Serious: No
  Sender: FDA-Public Use
  Company Number: CA-ELI_LILLY_AND_COMPANY-CA201306005618

PATIENT
  Sex: Female

DRUGS (2)
  1. CYMBALTA [Suspect]
     Indication: DEPRESSION
     Dosage: 120 MG, UNKNOWN
     Dates: start: 2008
  2. CYMBALTA [Suspect]
     Indication: FIBROMYALGIA

REACTIONS (1)
  - Hepatic enzyme abnormal [Not Recovered/Not Resolved]
